FAERS Safety Report 6993464-0 (Version None)
Quarter: 2010Q3

REPORT INFORMATION
  Report Type: 
  Country: None (occurrence: None)
  Receive Date: 20100917
  Receipt Date: 20100503
  Transmission Date: 20110219
  Serious: Yes (Other)
  Sender: FDA-Public Use
  Company Number: US-ASTRAZENECA-2010SE19907

PATIENT
  Age: 49 Year
  Sex: Female
  Weight: 68 kg

DRUGS (7)
  1. SEROQUEL [Suspect]
     Indication: DEPRESSION
     Route: 048
     Dates: start: 20030101
  2. SEROQUEL [Suspect]
     Indication: ANXIETY
     Route: 048
     Dates: start: 20030101
  3. SEROQUEL [Suspect]
     Indication: INSOMNIA
     Route: 048
     Dates: start: 20030101
  4. VERAPAMIL [Concomitant]
     Indication: HYPERTENSION
     Dosage: DAILY
     Route: 048
  5. CELEXA [Concomitant]
     Indication: DEPRESSION
     Dosage: DAILY
     Route: 048
  6. XANAX [Concomitant]
     Indication: ANXIETY
     Dosage: AS REQIURED
     Route: 048
  7. PRILOSEC [Concomitant]
     Indication: ABDOMINAL DISCOMFORT
     Dosage: DAILY
     Route: 048

REACTIONS (2)
  - CEREBROVASCULAR ACCIDENT [None]
  - CONVULSION [None]
